FAERS Safety Report 5141956-1 (Version None)
Quarter: 2006Q4

REPORT INFORMATION
  Report Type: 
  Country: None (occurrence: None)
  Receive Date: 20061102
  Receipt Date: 20061004
  Transmission Date: 20070319
  Serious: Yes (Death, Life-Threatening)
  Sender: FDA-Public Use
  Company Number: PHHO2006TW16527

PATIENT
  Age: 52 Year
  Sex: Male
  Weight: 64 kg

DRUGS (2)
  1. MYCOPHENOLATE MOFETIL [Concomitant]
     Indication: LIVER TRANSPLANT
     Dosage: 500 MG, Q12H
     Route: 048
     Dates: start: 20060721, end: 20060725
  2. NEORAL [Suspect]
     Indication: LIVER TRANSPLANT
     Dosage: 120 MG / DAY
     Route: 048
     Dates: start: 20060720

REACTIONS (5)
  - INTESTINAL HAEMORRHAGE [None]
  - LIVER TRANSPLANT REJECTION [None]
  - RENAL FAILURE [None]
  - RESPIRATORY FAILURE [None]
  - SEPTIC SHOCK [None]
